FAERS Safety Report 21528472 (Version 1)
Quarter: 2022Q4

REPORT INFORMATION
  Report Type: Spontaneous
  Country: GB (occurrence: GB)
  Receive Date: 20221031
  Receipt Date: 20221031
  Transmission Date: 20230113
  Serious: Yes (Disabling, Other)
  Sender: FDA-Public Use
  Company Number: GB-MHRA-MED-202210252019233700-LVMCW

PATIENT

DRUGS (1)
  1. VENTOLIN [Suspect]
     Active Substance: ALBUTEROL SULFATE
     Indication: Asthma exercise induced
     Dosage: UNK;AS REQUIRED
     Route: 065
     Dates: start: 19870901, end: 19970101

REACTIONS (1)
  - Sensitisation [Not Recovered/Not Resolved]

NARRATIVE: CASE EVENT DATE: 19871001
